FAERS Safety Report 15969177 (Version 2)
Quarter: 2019Q3

REPORT INFORMATION
  Report Type: Spontaneous
  Country: US (occurrence: US)
  Receive Date: 20190215
  Receipt Date: 20190702
  Transmission Date: 20191004
  Serious: Yes (Other)
  Sender: FDA-Public Use
  Company Number: US-PFIZER INC-2018358387

PATIENT
  Age: 73 Year
  Sex: Female
  Weight: 102 kg

DRUGS (7)
  1. CELEBREX [Suspect]
     Active Substance: CELECOXIB
     Indication: INTERVERTEBRAL DISC DISORDER
     Dosage: 100 MG, 2X/DAY
     Route: 048
  2. CELEBREX [Suspect]
     Active Substance: CELECOXIB
     Indication: BACK INJURY
  3. CELEBREX [Suspect]
     Active Substance: CELECOXIB
     Indication: NERVE INJURY
  4. CELEBREX [Suspect]
     Active Substance: CELECOXIB
     Indication: SPONDYLOLISTHESIS
     Dosage: 200 MG, TWICE DAILY
     Route: 048
  5. CELEBREX [Suspect]
     Active Substance: CELECOXIB
     Indication: NEURALGIA
  6. CELEBREX [Suspect]
     Active Substance: CELECOXIB
     Indication: BACK PAIN
  7. CELEBREX [Suspect]
     Active Substance: CELECOXIB
     Indication: PAIN

REACTIONS (9)
  - Fall [Unknown]
  - Thrombosis [Recovered/Resolved]
  - Off label use [Unknown]
  - Disease recurrence [Recovered/Resolved]
  - Intervertebral disc protrusion [Unknown]
  - Gait disturbance [Unknown]
  - Decreased activity [Unknown]
  - Gastroenteritis viral [Recovering/Resolving]
  - Product use in unapproved indication [Unknown]

NARRATIVE: CASE EVENT DATE: 20190130
